FAERS Safety Report 23664441 (Version 1)
Quarter: 2024Q1

REPORT INFORMATION
  Report Type: Spontaneous
  Country: US (occurrence: None)
  Receive Date: 20240322
  Receipt Date: 20240322
  Transmission Date: 20240410
  Serious: No
  Sender: FDA-Public Use
  Company Number: None

PATIENT
  Sex: Female

DRUGS (1)
  1. MONISTAT 1 COMBINATION PACK [Suspect]
     Active Substance: MICONAZOLE NITRATE
     Indication: Fungal infection
     Dates: start: 20240322, end: 20240322

REACTIONS (2)
  - Vulvovaginal burning sensation [None]
  - Vulvovaginal pruritus [None]

NARRATIVE: CASE EVENT DATE: 20240322
